FAERS Safety Report 25317309 (Version 2)
Quarter: 2025Q2

REPORT INFORMATION
  Report Type: Spontaneous
  Country: CO (occurrence: CO)
  Receive Date: 20250515
  Receipt Date: 20250602
  Transmission Date: 20250716
  Serious: Yes (Death, Disabling, Other)
  Sender: SANDOZ
  Company Number: CO-002147023-NVSC2024CO200024

PATIENT
  Age: 55 Year
  Sex: Female
  Weight: 90.55 kg

DRUGS (11)
  1. FULVESTRANT [Suspect]
     Active Substance: FULVESTRANT
     Indication: Invasive ductal breast carcinoma
     Dosage: 500 MG, QMO
     Route: 030
     Dates: start: 202409
  2. FULVESTRANT [Suspect]
     Active Substance: FULVESTRANT
     Indication: Invasive ductal breast carcinoma
  3. FULVESTRANT [Suspect]
     Active Substance: FULVESTRANT
     Indication: Neoplasm
  4. KISQALI [Suspect]
     Active Substance: RIBOCICLIB SUCCINATE
     Indication: Breast cancer metastatic
     Dosage: 600 MG, QD
     Route: 048
     Dates: start: 20210515
  5. KISQALI [Suspect]
     Active Substance: RIBOCICLIB SUCCINATE
     Indication: Hormone receptor positive HER2 negative breast cancer
  6. KISQALI [Suspect]
     Active Substance: RIBOCICLIB SUCCINATE
     Indication: Neoplasm malignant
  7. LETROZOLE [Suspect]
     Active Substance: LETROZOLE
     Indication: Neoplasm malignant
     Route: 065
     Dates: start: 20210515, end: 20240809
  8. LETROZOLE [Suspect]
     Active Substance: LETROZOLE
     Indication: Endocrine disorder
  9. ZOLEDRONIC ACID [Suspect]
     Active Substance: ZOLEDRONIC ACID
     Indication: Product used for unknown indication
     Route: 065
     Dates: start: 20210531, end: 20240906
  10. DENOSUMAB [Concomitant]
     Active Substance: DENOSUMAB
     Indication: Invasive ductal breast carcinoma
     Dosage: 120 MG, QMO
     Route: 058
  11. DENOSUMAB [Concomitant]
     Active Substance: DENOSUMAB
     Indication: Breast cancer

REACTIONS (16)
  - Death [Fatal]
  - Gait disturbance [Unknown]
  - Pain [Recovering/Resolving]
  - Arthralgia [Recovered/Resolved]
  - Hormone receptor positive HER2 negative breast cancer [Unknown]
  - Malignant neoplasm progression [Unknown]
  - Metastases to liver [Unknown]
  - Metastases to spine [Unknown]
  - Metastases to the mediastinum [Unknown]
  - Movement disorder [Unknown]
  - Ill-defined disorder [Unknown]
  - Diarrhoea [Unknown]
  - Constipation [Unknown]
  - Abdominal pain upper [Unknown]
  - Off label use [Unknown]
  - Product supply issue [Unknown]

NARRATIVE: CASE EVENT DATE: 20240920
